FAERS Safety Report 13936545 (Version 1)
Quarter: 2017Q3

REPORT INFORMATION
  Report Type: Report from Study
  Country: None (occurrence: US)
  Receive Date: 20170905
  Receipt Date: 20170905
  Transmission Date: 20171127
  Serious: Yes (Other)
  Sender: FDA-Public Use
  Company Number: US-ABBVIE-17P-163-2090842-00

PATIENT
  Sex: Female

DRUGS (1)
  1. HUMIRA [Suspect]
     Active Substance: ADALIMUMAB
     Indication: HIDRADENITIS
     Route: 058
     Dates: start: 20170609, end: 20170727

REACTIONS (2)
  - Nasal septum deviation [Recovering/Resolving]
  - Connective tissue disorder [Recovering/Resolving]

NARRATIVE: CASE EVENT DATE: 2017
